FAERS Safety Report 12153676 (Version 1)
Quarter: 2016Q1

REPORT INFORMATION
  Report Type: Spontaneous
  Country: US (occurrence: US)
  Receive Date: 20160307
  Receipt Date: 20160307
  Transmission Date: 20160526
  Serious: No
  Sender: FDA-Public Use
  Company Number: US-AMGEN-USASP2016024247

PATIENT
  Age: 55 Year
  Sex: Female
  Weight: 60.32 kg

DRUGS (13)
  1. ENBREL [Suspect]
     Active Substance: ETANERCEPT
     Dosage: 25 MG, 2 TIMES/WK (2 SEPARATE INJECTION SITE)
     Route: 058
     Dates: start: 20141104, end: 20151002
  2. ALEVE [Concomitant]
     Active Substance: NAPROXEN SODIUM
     Dosage: 220 MG, PM
     Route: 048
  3. ENBREL [Suspect]
     Active Substance: ETANERCEPT
     Indication: PRODUCT USED FOR UNKNOWN INDICATION
     Dosage: 25 MG, 2 TIMES/WK (2 SEPARATE INJECTION SITE)
     Route: 058
     Dates: start: 20140813, end: 20141030
  4. FOLIC ACID. [Concomitant]
     Active Substance: FOLIC ACID
     Dosage: 1 MG, QD
     Route: 048
     Dates: end: 20141106
  5. METHOTREXATE SODIUM. [Concomitant]
     Active Substance: METHOTREXATE SODIUM
     Dosage: 6 TABLET QWK WITH FOOD
     Route: 048
     Dates: end: 20150112
  6. FOLIC ACID. [Concomitant]
     Active Substance: FOLIC ACID
     Dosage: 1 MG, QD
     Route: 048
     Dates: start: 20141106, end: 20150113
  7. FOLIC ACID. [Concomitant]
     Active Substance: FOLIC ACID
     Dosage: 1 MG, QD
     Route: 048
     Dates: start: 20150113, end: 20150818
  8. FOLIC ACID. [Concomitant]
     Active Substance: FOLIC ACID
     Dosage: 1 MG, QD
     Route: 048
     Dates: start: 20150818
  9. ENBREL [Suspect]
     Active Substance: ETANERCEPT
     Dosage: 25 MG, 2 TIMES/WK (2 SEPARATE INJECTION SITE)
     Route: 058
     Dates: start: 20141030, end: 20141104
  10. ENBREL [Suspect]
     Active Substance: ETANERCEPT
     Dosage: 25 MG, 2 TIMES/WK (2 SEPARATE INJECTION SITE)
     Route: 058
     Dates: start: 20150210, end: 20150623
  11. ALLEGRA [Concomitant]
     Active Substance: FEXOFENADINE HYDROCHLORIDE
     Dosage: 180 MG, QD
     Route: 048
  12. METHOTREXATE SODIUM. [Concomitant]
     Active Substance: METHOTREXATE SODIUM
     Dosage: 6 TABLET QWK WITH FOOD
     Route: 048
     Dates: start: 20150112
  13. VIACTIV                            /01483701/ [Concomitant]
     Dosage: QD
     Route: 048
     Dates: end: 20150623

REACTIONS (9)
  - Drug effect incomplete [Unknown]
  - Deformity [Not Recovered/Not Resolved]
  - Mean platelet volume decreased [Unknown]
  - Gait disturbance [Unknown]
  - Bursitis [Unknown]
  - Osteoarthritis [Unknown]
  - Blood cholesterol increased [Unknown]
  - Arthralgia [Not Recovered/Not Resolved]
  - Red cell distribution width increased [Unknown]

NARRATIVE: CASE EVENT DATE: 20141120
